FAERS Safety Report 18699490 (Version 2)
Quarter: 2021Q1

REPORT INFORMATION
  Report Type: Report from Study
  Country: None (occurrence: US)
  Receive Date: 20210105
  Receipt Date: 20210118
  Transmission Date: 20210419
  Serious: Yes (Other)
  Sender: FDA-Public Use
  Company Number: US-ABBVIE-21K-163-3715758-00

PATIENT
  Age: 81 Year
  Sex: Male
  Weight: 83.99 kg

DRUGS (3)
  1. DUOPA [Suspect]
     Active Substance: CARBIDOPA\LEVODOPA
     Indication: PARKINSON^S DISEASE
     Route: 050
     Dates: start: 20200717, end: 202012
  2. DUOPA [Suspect]
     Active Substance: CARBIDOPA\LEVODOPA
     Route: 050
     Dates: start: 202101
  3. LEVODOPA/CARBIDOPA [Concomitant]
     Active Substance: CARBIDOPA\LEVODOPA
     Indication: PRODUCT USED FOR UNKNOWN INDICATION
     Route: 048

REACTIONS (4)
  - Pain [Recovered/Resolved]
  - Wrong technique in product usage process [Unknown]
  - Cardiac pacemaker insertion [Recovered/Resolved]
  - Device occlusion [Recovered/Resolved]

NARRATIVE: CASE EVENT DATE: 202012
